FAERS Safety Report 8090770-6 (Version None)
Quarter: 2012Q1

REPORT INFORMATION
  Report Type: 
  Country: None (occurrence: None)
  Receive Date: 20120124
  Receipt Date: 20120111
  Transmission Date: 20120608
  Serious: Yes (Disabling)
  Sender: FDA-Public Use
  Company Number: 20110092

PATIENT
  Age: 67 Year
  Sex: Female
  Weight: 104.3273 kg

DRUGS (16)
  1. MARCAINE [Suspect]
     Indication: ARTHRALGIA
     Dosage: 0.5 CC INTRA-ARTICULAR
     Route: 014
     Dates: start: 20101005, end: 20101005
  2. MARCAINE [Suspect]
     Indication: ARTHRITIS
     Dosage: 0.5 CC INTRA-ARTICULAR
     Route: 014
     Dates: start: 20101005, end: 20101005
  3. DICYCLOMINE [Concomitant]
  4. EFFEXOR [Concomitant]
  5. DEXAMETHASONE SODIUM PHOSPHATE [Suspect]
     Indication: ARTHRITIS
     Dosage: 0.5CC INTRA-ARTICULAR
     Route: 014
     Dates: start: 20101005, end: 20101005
  6. DEXAMETHASONE SODIUM PHOSPHATE [Suspect]
     Indication: ARTHRALGIA
     Dosage: 0.5CC INTRA-ARTICULAR
     Route: 014
     Dates: start: 20101005, end: 20101005
  7. TOPAMAX [Concomitant]
  8. LIDOCAINE HCL [Suspect]
     Indication: ARTHRITIS
     Dosage: 0.5CC INTRA-ARTICULAR
     Route: 014
     Dates: start: 20101005, end: 20101005
  9. LIDOCAINE HCL [Suspect]
     Indication: ARTHRALGIA
     Dosage: 0.5CC INTRA-ARTICULAR
     Route: 014
     Dates: start: 20101005, end: 20101005
  10. FLEXERIL [Concomitant]
  11. PRIMIDONE [Concomitant]
  12. SYNTHROID [Concomitant]
  13. ASPIRIN [Concomitant]
  14. DEXAMETHASONE ACETATE [Suspect]
     Dosage: 0.5 CC INTRA-ARTICULAR
     Route: 014
     Dates: start: 20101005, end: 20101005
  15. DYAZIDE [Concomitant]
  16. MELOXICAM [Concomitant]

REACTIONS (19)
  - INFLAMMATION [None]
  - LABORATORY TEST INTERFERENCE [None]
  - INJECTION SITE PAIN [None]
  - ABSCESS LIMB [None]
  - CELLULITIS [None]
  - DIARRHOEA [None]
  - STAPHYLOCOCCUS TEST POSITIVE [None]
  - PAIN IN EXTREMITY [None]
  - POOR QUALITY DRUG ADMINISTERED [None]
  - INJECTION SITE ULCER [None]
  - PROCEDURAL PAIN [None]
  - OEDEMA PERIPHERAL [None]
  - INJECTION SITE ERYTHEMA [None]
  - INJECTION SITE WARMTH [None]
  - INJECTION SITE SWELLING [None]
  - LOCALISED INFECTION [None]
  - IMPAIRED HEALING [None]
  - PRODUCT QUALITY ISSUE [None]
  - PRODUCT CONTAMINATION [None]
